FAERS Safety Report 4267072-9 (Version None)
Quarter: 2004Q1

REPORT INFORMATION
  Report Type: 
  Country: None (occurrence: None)
  Receive Date: 20040108
  Receipt Date: 20031120
  Transmission Date: 20041129
  Serious: Yes (Life-Threatening, Other)
  Sender: FDA-Public Use
  Company Number: PHNR2003AU01634

PATIENT
  Age: 29 Year
  Sex: Female

DRUGS (2)
  1. SYNTOCINON [Suspect]
     Indication: POSTPARTUM HAEMORRHAGE
     Dosage: 10 IU SINGLE INFUSION
     Dates: start: 20031115, end: 20031116
  2. SYNTOCINON [Suspect]
     Dosage: 4 X 10 IU INFUSION
     Dates: start: 20031115, end: 20031116

REACTIONS (5)
  - DRUG INEFFECTIVE [None]
  - MEDICATION ERROR [None]
  - PHARMACEUTICAL PRODUCT COMPLAINT [None]
  - POSTPARTUM HAEMORRHAGE [None]
  - RETAINED PLACENTA OR MEMBRANES [None]
